FAERS Safety Report 10385340 (Version 1)
Quarter: 2014Q3

REPORT INFORMATION
  Report Type: Spontaneous
  Country: FR (occurrence: None)
  Receive Date: 20140808
  Receipt Date: 20140808
  Transmission Date: 20150326
  Serious: Yes (Other)
  Sender: FDA-Public Use
  Company Number: 229058/LEO

PATIENT
  Age: 88 Year
  Sex: Female

DRUGS (6)
  1. FUROSEMIDE. [Concomitant]
     Active Substance: FUROSEMIDE
  2. AMLODIPINE [Concomitant]
     Active Substance: AMLODIPINE BESYLATE
  3. KARDEGIC [Concomitant]
     Active Substance: ASPIRIN LYSINE
  4. PICATO [Suspect]
     Active Substance: INGENOL MEBUTATE
     Indication: ACTINIC KERATOSIS
     Dates: start: 201406
  5. AMIODARONE [Concomitant]
     Active Substance: AMIODARONE
  6. HEMIGOXINE (DIGOXIN) [Concomitant]

REACTIONS (2)
  - Pulmonary embolism [None]
  - Inflammation [None]

NARRATIVE: CASE EVENT DATE: 201406
